FAERS Safety Report 13964155 (Version 1)
Quarter: 2017Q3

REPORT INFORMATION
  Report Type: Spontaneous
  Country: MX (occurrence: MX)
  Receive Date: 20170913
  Receipt Date: 20170913
  Transmission Date: 20171128
  Serious: Yes (Other)
  Sender: FDA-Public Use
  Company Number: MX-PFIZER INC-2017392467

PATIENT
  Sex: Male

DRUGS (1)
  1. REVATHIO [Suspect]
     Active Substance: SILDENAFIL CITRATE
     Indication: RESPIRATORY FAILURE
     Dosage: 20 MG, UNK

REACTIONS (2)
  - Product use in unapproved indication [Not Recovered/Not Resolved]
  - Hypoacusis [Not Recovered/Not Resolved]
